FAERS Safety Report 9559383 (Version 1)
Quarter: 2013Q3

REPORT INFORMATION
  Report Type: Spontaneous
  Country: US (occurrence: None)
  Receive Date: 20130906
  Receipt Date: 20130906
  Transmission Date: 20140515
  Serious: Yes (Other)
  Sender: FDA-Public Use
  Company Number: 163-POMAL-13074824

PATIENT
  Age: 76 Year
  Sex: Male
  Weight: 111.59 kg

DRUGS (9)
  1. POMALYST (POMALIDOMIDE) (4 MILLIGRAM, CAPSULES) [Suspect]
     Indication: PLASMA CELL MYELOMA
     Route: 048
     Dates: start: 20130502, end: 20130528
  2. DEXAMETHASONE [Concomitant]
  3. ACYCLOVIR(ACICLOVIR)(UNKNOWN) [Concomitant]
  4. COMPAZINE(PROCHLORPERAZINE EDISYLATE)(UNKNOWN) [Concomitant]
  5. SIMVASTATIN(SIMVASTATIN)(UNKNOWN) [Concomitant]
  6. PRILOSEC [Concomitant]
  7. SENOKOT(SENNA FRUIT)(UNKNOWN) [Concomitant]
  8. ASA(ACETYLSALICYLIC ACID)(UNKNOWN) [Concomitant]
  9. HYDROCLOROTHIAZIDE(HYDROCHLOROTHIAZIDE)(UNKNOWN [Concomitant]

REACTIONS (2)
  - Hypoaesthesia [None]
  - Anxiety [None]
